FAERS Safety Report 9931648 (Version 1)
Quarter: 2014Q1

REPORT INFORMATION
  Report Type: Spontaneous
  Country: IL (occurrence: IL)
  Receive Date: 20140228
  Receipt Date: 20140228
  Transmission Date: 20141002
  Serious: Yes (Hospitalization)
  Sender: FDA-Public Use
  Company Number: IL-VERTEX PHARMACEUTICALS INC-2014-001028

PATIENT
  Age: 64 Year
  Sex: Female

DRUGS (5)
  1. INCIVO [Suspect]
     Indication: CHRONIC HEPATITIS C
     Dosage: 2250 UNITS/FREQUENCY UNSPECIFIED; COMPLETED 10 WEEKS OF THERAPY
     Route: 048
     Dates: start: 20131018, end: 20131227
  2. RIBAVIRIN [Suspect]
     Indication: CHRONIC HEPATITIS C
     Dosage: DOSAGE FORM: UNKNOWN
     Route: 048
     Dates: end: 20140119
  3. RIBAVIRIN [Suspect]
     Dosage: DOSAGE FORM: UNKNOWN, 600 (UNIT/FREQUENCY UNSPECIFIED)
     Route: 048
     Dates: start: 20131018, end: 20131117
  4. PEGINTERFERON LAMBDA [Suspect]
     Indication: CHRONIC HEPATITIS C
     Dosage: DOSAGE FORM: INJECTION
     Route: 030
     Dates: start: 20131018, end: 20140119
  5. PEGINTERFERON ALFA 2A [Suspect]
     Indication: CHRONIC HEPATITIS C
     Dosage: DOSAGE FORM: INJECTION
     Route: 030
     Dates: start: 20131018, end: 20140119

REACTIONS (6)
  - Anaemia [Recovered/Resolved with Sequelae]
  - White blood cell count decreased [Unknown]
  - Asthenia [Unknown]
  - Platelet count decreased [Unknown]
  - Nausea [Unknown]
  - Pruritus [Unknown]
